FAERS Safety Report 5675210-6 (Version None)
Quarter: 2008Q1

REPORT INFORMATION
  Report Type: 
  Country: None (occurrence: None)
  Receive Date: 20080320
  Receipt Date: 20080311
  Transmission Date: 20080703
  Serious: Yes (Hospitalization)
  Sender: FDA-Public Use
  Company Number: US-GILEAD-2008-0015700

PATIENT
  Sex: Male

DRUGS (4)
  1. TRUVADA [Suspect]
     Indication: HIV INFECTION
     Dates: start: 20070101
  2. KALETRA [Concomitant]
     Indication: HIV INFECTION
  3. KEPPRA [Concomitant]
     Dates: start: 20071201
  4. DEPAKOTE [Concomitant]

REACTIONS (1)
  - CD4 LYMPHOCYTES DECREASED [None]
